FAERS Safety Report 21906717 (Version 1)
Quarter: 2023Q1

REPORT INFORMATION
  Report Type: Report from Study
  Country: DE (occurrence: DE)
  Receive Date: 20230125
  Receipt Date: 20230125
  Transmission Date: 20230418
  Serious: Yes (Life-Threatening, Hospitalization)
  Sender: FDA-Public Use
  Company Number: DE-NOVOPROD-1015739

PATIENT
  Age: 82 Year
  Sex: Female
  Weight: 92 kg

DRUGS (1)
  1. SEMAGLUTIDE [Suspect]
     Active Substance: SEMAGLUTIDE
     Indication: Cardiac failure
     Dosage: 2.4 MG, QW
     Route: 058
     Dates: start: 20211208, end: 20221207

REACTIONS (2)
  - Cholelithiasis [Recovered/Resolved]
  - Appendicitis [Recovered/Resolved]

NARRATIVE: CASE EVENT DATE: 20230109
